FAERS Safety Report 21463768 (Version 1)
Quarter: 2022Q4

REPORT INFORMATION
  Report Type: Spontaneous
  Country: US (occurrence: US)
  Receive Date: 20221017
  Receipt Date: 20221017
  Transmission Date: 20230112
  Serious: No
  Sender: FDA-Public Use
  Company Number: US-APOTEX-2022AP012312

PATIENT
  Sex: Male

DRUGS (1)
  1. OFLOXACIN [Suspect]
     Active Substance: OFLOXACIN
     Indication: Glaucoma
     Dosage: 2 GTT DROPS, QID (1 DROP IN EACH EYE)
     Route: 047

REACTIONS (3)
  - Product dose omission issue [Unknown]
  - Product packaging difficult to open [Recovered/Resolved]
  - No adverse event [Unknown]

NARRATIVE: CASE EVENT DATE: 20220101
